FAERS Safety Report 9479115 (Version 3)
Quarter: 2013Q3

REPORT INFORMATION
  Report Type: Spontaneous
  Country: JP (occurrence: JP)
  Receive Date: 20130827
  Receipt Date: 20130910
  Transmission Date: 20140515
  Serious: Yes (Hospitalization)
  Sender: FDA-Public Use
  Company Number: JP-GLAXOSMITHKLINE-B0917552A

PATIENT
  Age: 10 Year
  Sex: Female

DRUGS (6)
  1. FLOLAN [Suspect]
     Indication: PULMONARY ARTERIAL HYPERTENSION
     Route: 042
     Dates: start: 20130311
  2. REVATIO [Concomitant]
     Route: 048
  3. TRACLEER [Concomitant]
     Dosage: 42.25MG TWICE PER DAY
     Route: 048
     Dates: start: 20120302
  4. ADCIRCA [Concomitant]
     Dosage: 20MG TWICE PER DAY
     Route: 048
     Dates: start: 20120310
  5. FUROSEMIDE [Concomitant]
     Dosage: 5MG PER DAY
     Route: 048
  6. ALDACTONE A [Concomitant]
     Dosage: 5MG PER DAY
     Route: 048

REACTIONS (2)
  - Subcutaneous haematoma [Recovering/Resolving]
  - Headache [Unknown]
